FAERS Safety Report 20805192 (Version 2)
Quarter: 2022Q2

REPORT INFORMATION
  Report Type: Report from Study
  Country: CL (occurrence: CL)
  Receive Date: 20220509
  Receipt Date: 20220516
  Transmission Date: 20220721
  Serious: Yes (Hospitalization, Other)
  Sender: FDA-Public Use
  Company Number: CL-BRISTOL-MYERS SQUIBB COMPANY-2022-026097

PATIENT
  Age: 70 Year
  Sex: Male
  Weight: 79 kg

DRUGS (20)
  1. CISPLATIN [Suspect]
     Active Substance: CISPLATIN
     Indication: Non-small cell lung cancer
     Dosage: MOST RECENT DOSE ON 13-MAY-2020 (145 MG)
     Route: 065
     Dates: start: 20200331, end: 20200513
  2. PEMETREXED DISODIUM [Suspect]
     Active Substance: PEMETREXED DISODIUM
     Indication: Non-small cell lung cancer
     Dosage: MOST RECENT DOSE ON 13-MAY-2020 (965 MG)
     Route: 065
     Dates: start: 20200331, end: 20200513
  3. GLYBURIDE [Concomitant]
     Active Substance: GLYBURIDE
     Indication: Product used for unknown indication
     Dosage: EVERY 12 HOURS?ONGOING
     Route: 048
     Dates: start: 20210113
  4. COTRIMOXAZOLE [Concomitant]
     Active Substance: SULFAMETHOXAZOLE\TRIMETHOPRIM
     Indication: Prophylaxis
     Dosage: 1 DF- 1 UNIT NOS?TIS; THREE TIMES A WEEK?ONGOING
     Route: 048
     Dates: start: 20210518
  5. CALCIUM [Concomitant]
     Active Substance: CALCIUM
     Indication: Prophylaxis
     Dosage: 1 DF- 1 UNIT NOS?EVERY 24 HOURS?ONGOING
     Route: 048
     Dates: start: 20210518
  6. INSULIN NOS [Concomitant]
     Active Substance: INSULIN NOS
     Indication: Product used for unknown indication
     Dosage: 1 DF- 26 UNIT NOS?EVERY 24 HOURS?ONGOING
     Route: 058
     Dates: start: 20210601
  7. INSULIN NOS [Concomitant]
     Active Substance: INSULIN NOS
     Dosage: 1 DF- 1 UNIT NOS?AS NEEDED?FAST INSULIN?ONGOING
     Route: 058
     Dates: start: 20210521
  8. DOMPERIDONE [Concomitant]
     Active Substance: DOMPERIDONE
     Indication: Product used for unknown indication
     Dosage: AS NEEDED?ONGOING
     Route: 048
     Dates: start: 20200417
  9. LEVOTHYROXINE [Concomitant]
     Active Substance: LEVOTHYROXINE
     Indication: Product used for unknown indication
     Dosage: 1 DF- 75 UNIT NOS?EVERY 24 HOURS?ONGOING
     Route: 048
     Dates: start: 20211106
  10. FUROSEMIDE [Concomitant]
     Active Substance: FUROSEMIDE
     Indication: Product used for unknown indication
     Dosage: EVERY 24 HOURS?ONGOING
     Route: 048
     Dates: start: 20211130
  11. LOPERAMIDE [Concomitant]
     Active Substance: LOPERAMIDE
     Indication: Product used for unknown indication
     Dosage: AS NEEDED?ONGOING
     Route: 048
     Dates: start: 20200417
  12. PREGABALIN [Concomitant]
     Active Substance: PREGABALIN
     Indication: Product used for unknown indication
     Dosage: EVERY 24 HOURS?ONGOING
     Route: 048
     Dates: start: 20200819
  13. DESLORATADINE [Concomitant]
     Active Substance: DESLORATADINE
     Indication: Product used for unknown indication
     Dosage: EVERY 24 HOURS?ONGOING
     Route: 048
     Dates: start: 20201015
  14. CELECOXIB [Concomitant]
     Active Substance: CELECOXIB
     Indication: Product used for unknown indication
     Dosage: EVERY 24 HOURS?ONGOING
     Route: 048
     Dates: start: 20201231
  15. METFORMIN [Concomitant]
     Active Substance: METFORMIN HYDROCHLORIDE
     Indication: Product used for unknown indication
     Dosage: EVERY 8 HOURS?ONGOING
     Route: 048
     Dates: start: 20210113
  16. METFORMIN [Concomitant]
     Active Substance: METFORMIN HYDROCHLORIDE
     Dosage: CONTINUOUS?ONGOING
     Route: 048
     Dates: start: 20201111
  17. ONDANSENTRON [Concomitant]
     Indication: Product used for unknown indication
     Dosage: AS NEEDED?ONGOING
     Route: 048
     Dates: start: 20200406
  18. PREDNISONE [Concomitant]
     Active Substance: PREDNISONE
     Indication: Product used for unknown indication
     Dosage: EVERY 24 HOURS?ONGOING
     Route: 048
     Dates: start: 20211016
  19. OMEPRAZOLE [Concomitant]
     Active Substance: OMEPRAZOLE
     Indication: Prophylaxis
     Dosage: EVERY 24 HOURS?ONGOING
     Route: 048
     Dates: start: 20211022
  20. DAPAGLIFLOZIN [Concomitant]
     Active Substance: DAPAGLIFLOZIN
     Indication: Product used for unknown indication
     Dosage: EVERY 24 HOURS?ONGOING
     Route: 048
     Dates: start: 20211126

REACTIONS (2)
  - Pleural effusion [Recovered/Resolved]
  - Pneumonitis [Recovered/Resolved]

NARRATIVE: CASE EVENT DATE: 20220419
